FAERS Safety Report 11079249 (Version 1)
Quarter: 2015Q2

REPORT INFORMATION
  Report Type: Spontaneous
  Country: VE (occurrence: VE)
  Receive Date: 20150430
  Receipt Date: 20150430
  Transmission Date: 20150821
  Serious: Yes (Hospitalization, Other)
  Sender: FDA-Public Use
  Company Number: PHHY2015VE051873

PATIENT
  Sex: Male

DRUGS (2)
  1. ZOMETA [Suspect]
     Active Substance: ZOLEDRONIC ACID
     Indication: NEOPLASM MALIGNANT
     Dosage: 4 MG, UNK
     Route: 065
  2. ETACONIL [Concomitant]
     Indication: PRODUCT USED FOR UNKNOWN INDICATION
     Route: 065

REACTIONS (8)
  - Neoplasm malignant [Not Recovered/Not Resolved]
  - Thyroid cancer [Not Recovered/Not Resolved]
  - Second primary malignancy [Not Recovered/Not Resolved]
  - Breast enlargement [Not Recovered/Not Resolved]
  - Malignant neoplasm progression [Not Recovered/Not Resolved]
  - Brain neoplasm [Not Recovered/Not Resolved]
  - Metastasis [Not Recovered/Not Resolved]
  - Malaise [Not Recovered/Not Resolved]
